FAERS Safety Report 8361528-5 (Version None)
Quarter: 2012Q2

REPORT INFORMATION
  Report Type: 
  Country: None (occurrence: None)
  Receive Date: 20120515
  Receipt Date: 20120503
  Transmission Date: 20120825
  Serious: Yes (Hospitalization)
  Sender: FDA-Public Use
  Company Number: DE-ELI_LILLY_AND_COMPANY-DE201204004770

PATIENT
  Age: 4 Year
  Sex: Male
  Weight: 20 kg

DRUGS (1)
  1. CYMBALTA [Suspect]
     Dosage: 60 MG, SINGLE
     Route: 048
     Dates: start: 20120415, end: 20120415

REACTIONS (1)
  - ACCIDENTAL DRUG INTAKE BY CHILD [None]
